FAERS Safety Report 8075434-7 (Version None)
Quarter: 2012Q1

REPORT INFORMATION
  Report Type: 
  Country: None (occurrence: None)
  Receive Date: 20120120
  Receipt Date: 20120109
  Transmission Date: 20120608
  Serious: Yes (Hospitalization, Other)
  Sender: FDA-Public Use
  Company Number: 2012MA000662

PATIENT
  Age: 21 Year
  Sex: Female

DRUGS (6)
  1. SUMATRIPTAN [Concomitant]
  2. IBUPROFEN [Concomitant]
  3. TRAMADOL HYDROCHLORIDE [Suspect]
     Indication: ABDOMINAL PAIN
     Dosage: 100 MG;TDS
  4. METOCLOPRAMIDE [Concomitant]
  5. CYCLIZINE [Concomitant]
  6. OMEPRAZOLE [Concomitant]

REACTIONS (10)
  - VOMITING [None]
  - PITUITARY TUMOUR BENIGN [None]
  - LETHARGY [None]
  - ABDOMINAL PAIN [None]
  - VISION BLURRED [None]
  - ADRENAL INSUFFICIENCY [None]
  - HEADACHE [None]
  - HYPERPROLACTINAEMIA [None]
  - DIZZINESS [None]
  - STRESS [None]
